FAERS Safety Report 5781784-7 (Version None)
Quarter: 2008Q2

REPORT INFORMATION
  Report Type: 
  Country: None (occurrence: None)
  Receive Date: 20080623
  Receipt Date: 20071211
  Transmission Date: 20081010
  Serious: No
  Sender: FDA-Public Use
  Company Number: US-ASTRAZENECA-2007UW28206

PATIENT
  Age: 74 Year
  Sex: Female

DRUGS (5)
  1. RHINOCORT [Suspect]
     Indication: NASAL CONGESTION
     Dosage: ONE SPRAY PER NOSTRIL ONCE DAILY
     Route: 045
     Dates: start: 20071101
  2. ALLEGRA [Concomitant]
  3. METOPROLOL [Concomitant]
  4. VERAPAMIL [Concomitant]
  5. HYDROCHLOROTHIAZIDE [Concomitant]

REACTIONS (2)
  - DYSPNOEA [None]
  - HEART RATE INCREASED [None]
